FAERS Safety Report 8270349-3 (Version None)
Quarter: 2012Q2

REPORT INFORMATION
  Report Type: 
  Country: None (occurrence: None)
  Receive Date: 20120410
  Receipt Date: 20120330
  Transmission Date: 20120825
  Serious: Yes (Hospitalization)
  Sender: FDA-Public Use
  Company Number: NO-SANOFI-AVENTIS-2012SA022520

PATIENT
  Age: 69 Year
  Sex: Male

DRUGS (16)
  1. OXAZEPAM [Concomitant]
     Dosage: AT NIGHT WHEN NEEDED
     Route: 048
  2. PREDNISOLONE [Concomitant]
     Route: 048
  3. FUROSEMIDE [Concomitant]
     Route: 048
  4. LIPITOR [Concomitant]
     Route: 048
  5. RAMIPRIL [Concomitant]
     Route: 048
  6. MULTAQ [Suspect]
     Route: 048
     Dates: start: 20120209, end: 20120320
  7. FOLIC ACID [Concomitant]
     Route: 048
  8. RANITIDINE [Concomitant]
     Dosage: WHEN NEEDED
     Route: 048
  9. HUMALOG [Concomitant]
     Dosage: AT MEALS
     Route: 058
  10. BUPRENORPHINE [Concomitant]
     Dosage: 10 MICROGRAMS/HOUR
     Route: 062
  11. METHOTREXATE [Concomitant]
     Route: 065
  12. PULMICORT [Concomitant]
     Dosage: 1-2 INHALATIONS TWICE DAILY
     Route: 055
  13. SEROQUEL [Concomitant]
     Route: 048
  14. INSULATARD NPH HUMAN [Concomitant]
     Dosage: 2IU MORNING, 14-16IU EVENING
     Route: 058
  15. WARFARIN SODIUM [Concomitant]
     Route: 048
  16. ACETAMINOPHEN [Concomitant]
     Route: 048

REACTIONS (2)
  - BLOOD CREATININE INCREASED [None]
  - RENAL IMPAIRMENT [None]
